FAERS Safety Report 15172544 (Version 1)
Quarter: 2018Q3

REPORT INFORMATION
  Report Type: Spontaneous
  Country: US (occurrence: US)
  Receive Date: 20180720
  Receipt Date: 20180720
  Transmission Date: 20181010
  Serious: Yes (Hospitalization, Other)
  Sender: FDA-Public Use
  Company Number: US-INDIVIOR LIMITED-INDV-112452-2018

PATIENT
  Age: 43 Year
  Sex: Male
  Weight: 172.34 kg

DRUGS (3)
  1. SUBOXONE [Suspect]
     Active Substance: BUPRENORPHINE HYDROCHLORIDE\NALOXONE HYDROCHLORIDE
     Dosage: INCREASE DOSE FROM 2 TO 8 MG
     Route: 060
  2. KLONOPIN [Suspect]
     Active Substance: CLONAZEPAM
     Indication: PRODUCT USED FOR UNKNOWN INDICATION
     Dosage: UNK
     Route: 051
  3. SUBOXONE [Suspect]
     Active Substance: BUPRENORPHINE HYDROCHLORIDE\NALOXONE HYDROCHLORIDE
     Indication: DRUG DEPENDENCE
     Dosage: 8 MG, TID
     Route: 060
     Dates: end: 201612

REACTIONS (25)
  - Toothache [Unknown]
  - Mania [Unknown]
  - Mental impairment [Unknown]
  - Depression [Unknown]
  - Drug withdrawal syndrome [Recovered/Resolved]
  - Tooth loss [Unknown]
  - Malpositioned teeth [Unknown]
  - Panic attack [Unknown]
  - Periodontal disease [Unknown]
  - Mobility decreased [Recovered/Resolved]
  - Substance abuse [Unknown]
  - Hyperhidrosis [Recovered/Resolved]
  - Wrong technique in product usage process [Unknown]
  - Suicidal ideation [Recovered/Resolved]
  - Suicide attempt [Recovered/Resolved]
  - Weight decreased [Unknown]
  - Intentional product use issue [Unknown]
  - Drug detoxification [Unknown]
  - Feeling abnormal [Unknown]
  - Inappropriate schedule of drug administration [Unknown]
  - Diarrhoea [Recovered/Resolved]
  - Anxiety [Unknown]
  - Drug dependence [Unknown]
  - Bipolar disorder [Unknown]
  - Intentional underdose [Unknown]

NARRATIVE: CASE EVENT DATE: 2008
